FAERS Safety Report 23777827 (Version 1)
Quarter: 2024Q2

REPORT INFORMATION
  Report Type: Report from Study
  Country: US (occurrence: US)
  Receive Date: 20240424
  Receipt Date: 20240424
  Transmission Date: 20240715
  Serious: Yes (Hospitalization)
  Sender: FDA-Public Use
  Company Number: US-BAUSCHBL-2024BNL003688

PATIENT
  Age: 65 Year
  Sex: Female

DRUGS (1)
  1. MIEBO [Suspect]
     Active Substance: PERFLUOROHEXYLOCTANE
     Indication: Product used for unknown indication
     Dosage: INSTILL 1 DROP INTO THE AFFECTED EYE(S) EVERY 4-6 HOURS
     Route: 047
     Dates: end: 20240322

REACTIONS (4)
  - Hospitalisation [Unknown]
  - Muscular weakness [Unknown]
  - Paraesthesia [Unknown]
  - Eye irritation [Unknown]

NARRATIVE: CASE EVENT DATE: 20240101
